FAERS Safety Report 9369864 (Version 1)
Quarter: 2013Q2

REPORT INFORMATION
  Report Type: Spontaneous
  Country: US (occurrence: None)
  Receive Date: 20130625
  Receipt Date: 20130625
  Transmission Date: 20140414
  Serious: Yes (Life-Threatening, Hospitalization)
  Sender: FDA-Public Use
  Company Number: None

PATIENT
  Age: 74 Year
  Sex: Male
  Weight: 83.9 kg

DRUGS (1)
  1. DOCETAXEL [Suspect]
     Indication: LUNG SQUAMOUS CELL CARCINOMA STAGE IV
     Route: 042
     Dates: start: 20121202, end: 20121202

REACTIONS (6)
  - Type IV hypersensitivity reaction [None]
  - Face oedema [None]
  - Lip oedema [None]
  - Dyspnoea [None]
  - Wheezing [None]
  - Pleural effusion [None]
